FAERS Safety Report 9332791 (Version 1)
Quarter: 2013Q2

REPORT INFORMATION
  Report Type: Spontaneous
  Country: US (occurrence: US)
  Receive Date: 20130606
  Receipt Date: 20130606
  Transmission Date: 20140414
  Serious: Yes (Other)
  Sender: FDA-Public Use
  Company Number: US-PFIZER INC-2013168337

PATIENT
  Age: 48 Year
  Sex: Female

DRUGS (1)
  1. CHANTIX [Suspect]
     Indication: SMOKING CESSATION THERAPY
     Dosage: UNK
     Dates: start: 201110

REACTIONS (5)
  - Myocardial infarction [Unknown]
  - Thinking abnormal [Unknown]
  - Abnormal dreams [Unknown]
  - Weight increased [Unknown]
  - Angiopathy [Unknown]
